FAERS Safety Report 9176169 (Version 2)
Quarter: 2013Q2

REPORT INFORMATION
  Report Type: Spontaneous
  Country: ES (occurrence: ES)
  Receive Date: 20130321
  Receipt Date: 20130517
  Transmission Date: 20140414
  Serious: Yes (Death, Hospitalization, Other)
  Sender: FDA-Public Use
  Company Number: PHHY2013ES027084

PATIENT
  Age: 55 Year
  Sex: Female

DRUGS (7)
  1. OXYCODONE HYDROCHLORIDE [Suspect]
     Indication: BONE PAIN
     Route: 048
  2. TRAMADOL [Suspect]
     Indication: BONE PAIN
  3. MORPHINE [Suspect]
     Indication: BONE PAIN
     Route: 048
  4. FENTANYL [Suspect]
     Indication: BONE PAIN
     Route: 062
  5. MORPHINE [Suspect]
     Dosage: 450 MG, QD
     Route: 058
  6. BUPRENORPHINE [Suspect]
     Indication: BONE PAIN
     Route: 062
  7. OXYCODONE [Suspect]
     Indication: BONE PAIN
     Dosage: 320 MG/24 HOUR

REACTIONS (11)
  - Pulmonary haemorrhage [Fatal]
  - Haemorrhoids [Recovering/Resolving]
  - Pain [Recovering/Resolving]
  - Delirium [Unknown]
  - Gastrointestinal hypomotility [Unknown]
  - Constipation [Recovering/Resolving]
  - Abdominal symptom [Recovering/Resolving]
  - Flatulence [Recovering/Resolving]
  - Intestinal obstruction [Unknown]
  - Abdominal distension [Unknown]
  - Drug ineffective [Unknown]
